FAERS Safety Report 19737982 (Version 1)
Quarter: 2021Q3

REPORT INFORMATION
  Report Type: Spontaneous
  Country: US (occurrence: US)
  Receive Date: 20210823
  Receipt Date: 20210823
  Transmission Date: 20211014
  Serious: No
  Sender: FDA-Public Use
  Company Number: US-TAKEDA-2021TUS050885

PATIENT
  Sex: Female

DRUGS (1)
  1. ENTYVIO [Suspect]
     Active Substance: VEDOLIZUMAB
     Indication: PRODUCT USED FOR UNKNOWN INDICATION
     Dosage: UNK
     Route: 042
     Dates: start: 2015

REACTIONS (6)
  - Feeling hot [Unknown]
  - Muscle contracture [Unknown]
  - Oropharyngeal discomfort [Unknown]
  - Product administration interrupted [Unknown]
  - Dyspnoea [Unknown]
  - Paraesthesia [Unknown]
